FAERS Safety Report 7506977-X (Version None)
Quarter: 2011Q2

REPORT INFORMATION
  Report Type: 
  Country: None (occurrence: None)
  Receive Date: 20110526
  Receipt Date: 20110512
  Transmission Date: 20111010
  Serious: No
  Sender: FDA-Public Use
  Company Number: AT-UCBSA-028633

PATIENT
  Sex: Female
  Weight: 50.5 kg

DRUGS (1)
  1. KEPPRA [Suspect]
     Indication: EPILEPSY
     Dates: start: 20100801, end: 20110405

REACTIONS (1)
  - LEUKOPENIA [None]
